FAERS Safety Report 9070080 (Version 1)
Quarter: 2013Q1

REPORT INFORMATION
  Report Type: Report from Study
  Country: US (occurrence: US)
  Receive Date: 20130129
  Receipt Date: 20130129
  Transmission Date: 20140127
  Serious: No
  Sender: FDA-Public Use
  Company Number: US-ABBOTT-12P-163-0927266-00

PATIENT
  Age: 44 Year
  Sex: Female

DRUGS (12)
  1. DHEA [Concomitant]
     Indication: PRODUCT USED FOR UNKNOWN INDICATION
  2. PREGNENOLONE [Concomitant]
     Indication: PRODUCT USED FOR UNKNOWN INDICATION
  3. HUMIRA 40 MG/0.8 ML PEN [Suspect]
     Indication: PSORIATIC ARTHROPATHY
  4. B-COMPLEX [Concomitant]
     Indication: VITAMIN SUPPLEMENTATION
  5. OMEGA 3 [Concomitant]
     Indication: MEDICAL DIET
  6. MULTIVITAMIN [Concomitant]
     Indication: VITAMIN SUPPLEMENTATION
  7. B-12 [Concomitant]
     Indication: MEDICAL DIET
     Dosage: 1 TIME A WEEK
  8. ADREN-ALL [Concomitant]
     Indication: MEDICAL DIET
  9. TESTOSTERONE [Concomitant]
     Indication: MEDICAL DIET
  10. HYDROCORTISONE [Concomitant]
     Indication: INFLAMMATION
  11. HYDROCORTISONE [Concomitant]
     Indication: FATIGUE
  12. UNKNOWN MEDICATION [Concomitant]
     Indication: HYPOTHYROIDISM

REACTIONS (4)
  - Fatigue [Not Recovered/Not Resolved]
  - Pain [Not Recovered/Not Resolved]
  - Psoriasis [Not Recovered/Not Resolved]
  - Lymphadenopathy [Not Recovered/Not Resolved]
